FAERS Safety Report 14758195 (Version 1)
Quarter: 2018Q2

REPORT INFORMATION
  Report Type: Spontaneous
  Country: US (occurrence: US)
  Receive Date: 20180413
  Receipt Date: 20180413
  Transmission Date: 20180711
  Serious: No
  Sender: FDA-Public Use
  Company Number: US-NOVOPROD-583588

PATIENT
  Age: 69 Year
  Sex: Female

DRUGS (1)
  1. TRESIBA [Suspect]
     Active Substance: INSULIN DEGLUDEC
     Indication: TYPE 2 DIABETES MELLITUS
     Dosage: 16 U, UNK
     Route: 058
     Dates: start: 20180126

REACTIONS (7)
  - Injection site reaction [Recovered/Resolved]
  - Injection site mass [Recovered/Resolved]
  - Wrong technique in product usage process [Recovered/Resolved]
  - Injection site erythema [Recovered/Resolved]
  - Injection site pain [Not Recovered/Not Resolved]
  - Influenza [Unknown]
  - Upper respiratory tract infection [Unknown]

NARRATIVE: CASE EVENT DATE: 2018
